FAERS Safety Report 5488198-8 (Version None)
Quarter: 2007Q3

REPORT INFORMATION
  Report Type: 
  Country: None (occurrence: None)
  Receive Date: 20070926
  Receipt Date: 20070719
  Transmission Date: 20080115
  Serious: No
  Sender: FDA-Public Use
  Company Number: HQWYE153719JUL07

PATIENT
  Sex: 0

DRUGS (1)
  1. TORISEL [Suspect]

REACTIONS (1)
  - EXTRAVASATION [None]
